FAERS Safety Report 12538007 (Version 3)
Quarter: 2016Q3

REPORT INFORMATION
  Report Type: Spontaneous
  Country: US (occurrence: US)
  Receive Date: 20160707
  Receipt Date: 20160902
  Transmission Date: 20161109
  Serious: Yes (Other)
  Sender: FDA-Public Use
  Company Number: US-PFIZER INC-2016325106

PATIENT
  Sex: Female

DRUGS (2)
  1. LYRICA [Suspect]
     Active Substance: PREGABALIN
     Dosage: 75 MG, UNK
  2. LYRICA [Suspect]
     Active Substance: PREGABALIN
     Dosage: 50 MG,8X DAY

REACTIONS (7)
  - Drug ineffective [Not Recovered/Not Resolved]
  - Nerve compression [Unknown]
  - Headache [Unknown]
  - Fatigue [Unknown]
  - Hyperhidrosis [Unknown]
  - Spinal cord injury [Not Recovered/Not Resolved]
  - Intentional product misuse [Unknown]
